FAERS Safety Report 19490132 (Version 1)
Quarter: 2021Q3

REPORT INFORMATION
  Report Type: Spontaneous
  Country: CN (occurrence: CN)
  Receive Date: 20210705
  Receipt Date: 20210705
  Transmission Date: 20211014
  Serious: Yes (Death, Other)
  Sender: FDA-Public Use
  Company Number: CN-SUN PHARMACEUTICAL INDUSTRIES LTD-2021R1-302116

PATIENT
  Age: 29 Year
  Sex: Female

DRUGS (2)
  1. FOLLITROPIN [Concomitant]
     Active Substance: FOLLITROPIN
     Indication: OVULATION DISORDER
     Dosage: 150 IU
     Route: 030
  2. LEUPROLIDE [Suspect]
     Active Substance: LEUPROLIDE
     Indication: PRODUCT USED FOR UNKNOWN INDICATION
     Dosage: UNK
     Route: 058

REACTIONS (1)
  - Ovarian hyperstimulation syndrome [Fatal]
